FAERS Safety Report 13905233 (Version 10)
Quarter: 2019Q1

REPORT INFORMATION
  Report Type: Spontaneous
  Country: US (occurrence: US)
  Receive Date: 20170825
  Receipt Date: 20190308
  Transmission Date: 20190417
  Serious: Yes (Hospitalization)
  Sender: FDA-Public Use
  Company Number: US-PFIZER INC-2017367286

PATIENT
  Age: 90 Year
  Sex: Female
  Weight: 64 kg

DRUGS (12)
  1. PROTONIX [Suspect]
     Active Substance: PANTOPRAZOLE SODIUM
     Indication: ABDOMINAL PAIN UPPER
  2. VITAMIN D2 [Suspect]
     Active Substance: ERGOCALCIFEROL
     Dosage: 1 DF, WEEKLY
  3. L-THYROXINE [Suspect]
     Active Substance: LEVOTHYROXINE
     Indication: THYROID DISORDER
     Dosage: 75 MILLIGRAM, QD
     Route: 065
     Dates: start: 1990
  4. LOPRESSOR [Suspect]
     Active Substance: METOPROLOL TARTRATE
     Indication: BLOOD PRESSURE ABNORMAL
     Dosage: 25 MG, 1X/DAY
     Route: 065
  5. PANTOPRAZOLE [Suspect]
     Active Substance: PANTOPRAZOLE
     Indication: ABDOMINAL PAIN UPPER
     Dosage: 40 MILLIGRAM, QD
     Route: 065
     Dates: start: 201708
  6. ALTACE [Suspect]
     Active Substance: RAMIPRIL
     Indication: HYPERTENSION
  7. SYNTHROID [Suspect]
     Active Substance: LEVOTHYROXINE SODIUM
     Indication: THYROID DISORDER
     Dosage: 75 MG, DAILY
     Dates: start: 1970
  8. SYNTHROID [Suspect]
     Active Substance: LEVOTHYROXINE SODIUM
     Dosage: 75 UG, DAILY
  9. ALTACE [Suspect]
     Active Substance: RAMIPRIL
     Indication: BLOOD PRESSURE ABNORMAL
     Dosage: 10 MG, 1X/DAY
  10. PROTONIX [Suspect]
     Active Substance: PANTOPRAZOLE SODIUM
     Indication: GASTROINTESTINAL DISORDER
     Dosage: 40 MG, DAILY
     Dates: start: 201701, end: 201708
  11. LOPRESSOR [Suspect]
     Active Substance: METOPROLOL TARTRATE
     Indication: HYPERTENSION
  12. VITAMIN D2 [Suspect]
     Active Substance: ERGOCALCIFEROL
     Dosage: UNK, WEEKLY, (1.25 MG 50)

REACTIONS (15)
  - Haemorrhage [Recovered/Resolved]
  - Diarrhoea [Recovered/Resolved]
  - Abdominal pain [Unknown]
  - Chest discomfort [Recovered/Resolved]
  - Headache [Recovered/Resolved]
  - Dizziness [Recovered/Resolved]
  - Nocturia [Recovered/Resolved]
  - Hypoaesthesia [Recovered/Resolved]
  - Arthralgia [Recovered/Resolved]
  - Muscular weakness [Recovered/Resolved]
  - Flatulence [Recovered/Resolved]
  - Muscle spasms [Recovered/Resolved]
  - Hypertension [Recovered/Resolved]
  - Micturition disorder [Unknown]
  - Paraesthesia [Recovered/Resolved]

NARRATIVE: CASE EVENT DATE: 201701
